FAERS Safety Report 7315160-2 (Version None)
Quarter: 2011Q1

REPORT INFORMATION
  Report Type: 
  Country: None (occurrence: None)
  Receive Date: 20110225
  Receipt Date: 20110218
  Transmission Date: 20110831
  Serious: Yes (Other)
  Sender: FDA-Public Use
  Company Number: IE-PFIZER INC-2011016991

PATIENT
  Sex: Male

DRUGS (1)
  1. REVATIO [Suspect]
     Dosage: 80 MG, UNK

REACTIONS (1)
  - INFECTION [None]
